FAERS Safety Report 9249633 (Version 1)
Quarter: 2013Q2

REPORT INFORMATION
  Report Type: Spontaneous
  Country: US (occurrence: US)
  Receive Date: 20130423
  Receipt Date: 20130423
  Transmission Date: 20140414
  Serious: Yes (Other)
  Sender: FDA-Public Use
  Company Number: US-BRISTOL-MYERS SQUIBB COMPANY-17339417

PATIENT
  Sex: 0

DRUGS (1)
  1. YERVOY [Suspect]

REACTIONS (3)
  - Colitis [Unknown]
  - Metastases to central nervous system [Unknown]
  - Haemolytic anaemia [Recovering/Resolving]
